FAERS Safety Report 23681620 (Version 1)
Quarter: 2024Q1

REPORT INFORMATION
  Report Type: Spontaneous
  Country: AU (occurrence: AU)
  Receive Date: 20240328
  Receipt Date: 20240328
  Transmission Date: 20240410
  Serious: Yes (Hospitalization)
  Sender: FDA-Public Use
  Company Number: AU-002147023-NVSC2024AU060825

PATIENT
  Age: 63 Year
  Sex: Male

DRUGS (7)
  1. SECUKINUMAB [Suspect]
     Active Substance: SECUKINUMAB
     Indication: Multiple sclerosis
     Dosage: UNK
     Route: 065
     Dates: start: 202004
  2. SECUKINUMAB [Suspect]
     Active Substance: SECUKINUMAB
     Indication: Demyelination
  3. SECUKINUMAB [Suspect]
     Active Substance: SECUKINUMAB
     Indication: Ankylosing spondylitis
  4. DIMETHYL FUMARATE [Suspect]
     Active Substance: DIMETHYL FUMARATE
     Indication: Multiple sclerosis
     Dosage: UNK
     Route: 065
     Dates: start: 202103
  5. DIMETHYL FUMARATE [Suspect]
     Active Substance: DIMETHYL FUMARATE
     Indication: Demyelination
  6. TERIFLUNOMIDE [Suspect]
     Active Substance: TERIFLUNOMIDE
     Indication: Multiple sclerosis
     Dosage: UNK
     Route: 065
     Dates: start: 202004
  7. TERIFLUNOMIDE [Suspect]
     Active Substance: TERIFLUNOMIDE
     Indication: Demyelination

REACTIONS (6)
  - Influenza [Unknown]
  - JC polyomavirus test positive [Unknown]
  - Balance disorder [Unknown]
  - Facial pain [Unknown]
  - Central nervous system lesion [Unknown]
  - Lymphocyte count decreased [Unknown]

NARRATIVE: CASE EVENT DATE: 20201201
